FAERS Safety Report 10717439 (Version 2)
Quarter: 2015Q1

REPORT INFORMATION
  Report Type: Report from Study
  Country: US (occurrence: US)
  Receive Date: 20150116
  Receipt Date: 20150210
  Transmission Date: 20150721
  Serious: Yes (Hospitalization, Other)
  Sender: FDA-Public Use
  Company Number: US-GILEAD-2015-0131633

PATIENT
  Age: 61 Year
  Sex: Female

DRUGS (5)
  1. ELAVIL [Concomitant]
     Active Substance: AMITRIPTYLINE HYDROCHLORIDE
  2. PEGASYS [Concomitant]
     Active Substance: PEGINTERFERON ALFA-2A
  3. RIBAVIRIN. [Concomitant]
     Active Substance: RIBAVIRIN
  4. MULTIVITAMINS [Concomitant]
     Active Substance: VITAMINS
  5. SOFOSBUVIR [Suspect]
     Active Substance: SOFOSBUVIR
     Indication: CHRONIC HEPATITIS C
     Dosage: 400 MG, QD
     Route: 048
     Dates: start: 20140716, end: 20140901

REACTIONS (8)
  - Incorrect dosage administered [Unknown]
  - Hepatitis C [Unknown]
  - Weight decreased [Unknown]
  - Pruritus [Unknown]
  - Alopecia [Unknown]
  - Drug ineffective [Unknown]
  - Impatience [Unknown]
  - Depression [Unknown]
